FAERS Safety Report 10424774 (Version 1)
Quarter: 2014Q3

REPORT INFORMATION
  Report Type: Spontaneous
  Country: US (occurrence: US)
  Receive Date: 20140902
  Receipt Date: 20140902
  Transmission Date: 20150326
  Serious: Yes (Other)
  Sender: FDA-Public Use
  Company Number: US-TEVA-505227USA

PATIENT
  Age: 59 Year
  Sex: Female
  Weight: 72.64 kg

DRUGS (5)
  1. VALIUM [Concomitant]
     Active Substance: DIAZEPAM
     Indication: MUSCLE SPASMS
  2. OXYCONTIN [Concomitant]
     Active Substance: OXYCODONE HYDROCHLORIDE
     Indication: PAIN
     Dosage: 60 MILLIGRAM DAILY;
  3. DILAUDID [Concomitant]
     Active Substance: HYDROMORPHONE HYDROCHLORIDE
     Indication: PAIN
  4. OTFC [Suspect]
     Active Substance: FENTANYL CITRATE
     Indication: MUSCULOSKELETAL PAIN
     Dosage: 7200 MICROGRAM DAILY;
     Route: 065
  5. ACTIQ [Suspect]
     Active Substance: FENTANYL CITRATE
     Indication: MUSCULOSKELETAL PAIN
     Route: 065

REACTIONS (10)
  - Agitation [Not Recovered/Not Resolved]
  - Pain [Recovered/Resolved]
  - Drug withdrawal syndrome [Not Recovered/Not Resolved]
  - Arthropathy [Not Recovered/Not Resolved]
  - Off label use [Unknown]
  - Tooth erosion [Not Recovered/Not Resolved]
  - Dental caries [Not Recovered/Not Resolved]
  - Overweight [Not Recovered/Not Resolved]
  - Teeth brittle [Not Recovered/Not Resolved]
  - Protein total increased [Unknown]

NARRATIVE: CASE EVENT DATE: 201408
